FAERS Safety Report 10393182 (Version 1)
Quarter: 2014Q3

REPORT INFORMATION
  Report Type: Spontaneous
  Country: US (occurrence: US)
  Receive Date: 20140819
  Receipt Date: 20140819
  Transmission Date: 20150326
  Serious: No
  Sender: FDA-Public Use
  Company Number: US-009507513-1407USA007921

PATIENT
  Age: 5 Month
  Sex: Female
  Weight: 8.16 kg

DRUGS (1)
  1. COPPERTONE WATER BABIES SPF 55 [Suspect]
     Active Substance: AVOBENZONE\HOMOSALATE\OCTISALATE\OCTOCRYLENE\OXYBENZONE
     Indication: PRODUCT USED FOR UNKNOWN INDICATION
     Dosage: UNK, UNKNOWN
     Route: 061
     Dates: start: 20140628

REACTIONS (5)
  - Swelling face [Not Recovered/Not Resolved]
  - Crying [Not Recovered/Not Resolved]
  - Eye irritation [Not Recovered/Not Resolved]
  - Eyelid oedema [Not Recovered/Not Resolved]
  - Ocular hyperaemia [Not Recovered/Not Resolved]

NARRATIVE: CASE EVENT DATE: 20140628
